APPROVED DRUG PRODUCT: AMITRIPTYLINE HYDROCHLORIDE
Active Ingredient: AMITRIPTYLINE HYDROCHLORIDE
Strength: 50MG
Dosage Form/Route: TABLET;ORAL
Application: A218389 | Product #003 | TE Code: AB
Applicant: UNIQUE PHARMACEUTICAL LABORATORIES
Approved: Jun 23, 2025 | RLD: No | RS: No | Type: RX